FAERS Safety Report 9473696 (Version 2)
Quarter: 2013Q3

REPORT INFORMATION
  Report Type: Spontaneous
  Country: US (occurrence: US)
  Receive Date: 20130823
  Receipt Date: 20130823
  Transmission Date: 20140515
  Serious: No
  Sender: FDA-Public Use
  Company Number: US-BRISTOL-MYERS SQUIBB COMPANY-16910895

PATIENT
  Age: 45 Year
  Sex: Female
  Weight: 54.42 kg

DRUGS (1)
  1. SPRYCEL [Suspect]
     Indication: BREAST CANCER METASTATIC
     Dosage: INTERRUPTED,RESTARTED ON 13JUL12
     Dates: start: 201204

REACTIONS (1)
  - Dizziness [Unknown]
